FAERS Safety Report 16540136 (Version 1)
Quarter: 2019Q3

REPORT INFORMATION
  Report Type: Spontaneous
  Country: US (occurrence: US)
  Receive Date: 20190708
  Receipt Date: 20190708
  Transmission Date: 20191004
  Serious: No
  Sender: FDA-Public Use
  Company Number: US-PFIZER INC-2018231912

PATIENT
  Age: 6 Year
  Sex: Female

DRUGS (1)
  1. GENOTROPIN [Suspect]
     Active Substance: SOMATROPIN
     Indication: HORMONE THERAPY
     Dosage: 0.1 MG, DAILY
     Dates: start: 20120404

REACTIONS (4)
  - Protein total decreased [Unknown]
  - Underdose [Unknown]
  - Blood calcium increased [Unknown]
  - Blood potassium increased [Unknown]
